FAERS Safety Report 6647801-7 (Version None)
Quarter: 2010Q1

REPORT INFORMATION
  Report Type: 
  Country: None (occurrence: None)
  Receive Date: 20100324
  Receipt Date: 20100316
  Transmission Date: 20100710
  Serious: No
  Sender: FDA-Public Use
  Company Number: 2008BI025642

PATIENT
  Age: 59 Year
  Sex: Female

DRUGS (1)
  1. TYSABRI [Suspect]
     Indication: MULTIPLE SCLEROSIS
     Route: 042
     Dates: start: 20080718

REACTIONS (16)
  - ABDOMINAL DISCOMFORT [None]
  - ABDOMINAL PAIN UPPER [None]
  - ASTHENIA [None]
  - BLEPHARITIS [None]
  - BLOOD URINE PRESENT [None]
  - CONJUNCTIVITIS [None]
  - CONJUNCTIVITIS ALLERGIC [None]
  - CYSTITIS HAEMORRHAGIC [None]
  - DEPRESSION [None]
  - DRY EYE [None]
  - ECZEMA EYELIDS [None]
  - FATIGUE [None]
  - MEMORY IMPAIRMENT [None]
  - NAUSEA [None]
  - ORAL HERPES [None]
  - SENSORY DISTURBANCE [None]
